FAERS Safety Report 7414491-5 (Version None)
Quarter: 2011Q2

REPORT INFORMATION
  Report Type: 
  Country: None (occurrence: None)
  Receive Date: 20110414
  Receipt Date: 20110406
  Transmission Date: 20111010
  Serious: Yes (Death, Hospitalization)
  Sender: FDA-Public Use
  Company Number: DE-CELGENEUS-062-21880-11031961

PATIENT
  Age: 76 Year
  Sex: Female
  Weight: 90 kg

DRUGS (2)
  1. VIDAZA [Suspect]
     Dosage: 74.25MG
     Route: 058
     Dates: start: 20110103, end: 20110405
  2. REVLIMID [Suspect]
     Dosage: 25 MILLIGRAM
     Route: 048
     Dates: start: 20110108, end: 20110405

REACTIONS (1)
  - BRONCHOPULMONARY ASPERGILLOSIS [None]
